FAERS Safety Report 7844849-1 (Version None)
Quarter: 2011Q4

REPORT INFORMATION
  Report Type: 
  Country: None (occurrence: None)
  Receive Date: 20111025
  Receipt Date: 20111017
  Transmission Date: 20120403
  Serious: Yes (Other)
  Sender: FDA-Public Use
  Company Number: JP-GLAXOSMITHKLINE-B0755274A

PATIENT
  Age: 62 Year
  Sex: Female

DRUGS (13)
  1. LEXOTAN [Concomitant]
     Dosage: 6MG PER DAY
     Route: 048
  2. MAGMITT [Concomitant]
     Dosage: 990MG PER DAY
     Route: 048
  3. RABEPRAZOLE SODIUM [Concomitant]
     Dosage: 10MG PER DAY
     Route: 048
  4. LITHIUM CARBONATE [Concomitant]
     Dosage: 800MG PER DAY
     Route: 048
  5. REQUIP [Suspect]
     Indication: PARKINSON'S DISEASE
     Dosage: 7MG PER DAY
     Route: 048
     Dates: start: 20101201, end: 20111010
  6. HALCION [Concomitant]
     Dosage: .25MG PER DAY
     Route: 048
  7. GASMOTIN [Concomitant]
     Dosage: 15MG PER DAY
     Route: 048
  8. REQUIP [Suspect]
     Dosage: 8MG PER DAY
     Route: 048
     Dates: start: 20111011
  9. ZOLPIDEM [Concomitant]
     Dosage: 10MG PER DAY
     Route: 048
  10. ROHYPNOL [Concomitant]
     Dosage: 4MG PER DAY
     Route: 048
  11. SENNOSIDE [Concomitant]
     Dosage: 24MG PER DAY
     Route: 048
  12. NITRAZEPAM [Concomitant]
     Route: 048
  13. FOIPAN [Concomitant]
     Route: 048

REACTIONS (1)
  - SUDDEN ONSET OF SLEEP [None]
